FAERS Safety Report 5761554-6 (Version None)
Quarter: 2008Q2

REPORT INFORMATION
  Report Type: 
  Country: None (occurrence: None)
  Receive Date: 20080606
  Receipt Date: 20080527
  Transmission Date: 20081010
  Serious: No
  Sender: FDA-Public Use
  Company Number: US-PFIZER INC-2006105593

PATIENT
  Sex: Male
  Weight: 88.9 kg

DRUGS (2)
  1. CELEBREX [Suspect]
     Indication: ARTHRITIS
  2. IBUROFEN [Concomitant]

REACTIONS (1)
  - NO ADVERSE EVENT [None]
